FAERS Safety Report 4909969-X (Version None)
Quarter: 2006Q1

REPORT INFORMATION
  Report Type: 
  Country: None (occurrence: None)
  Receive Date: 20060208
  Receipt Date: 20060127
  Transmission Date: 20060701
  Serious: Yes (Hospitalization)
  Sender: FDA-Public Use
  Company Number: 2006015698

PATIENT
  Age: 36 Year
  Sex: Female

DRUGS (1)
  1. SOLU-MEDROL [Suspect]
     Indication: MULTIPLE SCLEROSIS
     Dosage: 500 MG, INTRAVENOUS
     Route: 042
     Dates: start: 20060105, end: 20060105

REACTIONS (3)
  - DRY EYE [None]
  - PARAESTHESIA MUCOSAL [None]
  - RASH MORBILLIFORM [None]
